FAERS Safety Report 4432987-5 (Version None)
Quarter: 2004Q3

REPORT INFORMATION
  Report Type: 
  Country: None (occurrence: None)
  Receive Date: 20040726
  Receipt Date: 20040505
  Transmission Date: 20050211
  Serious: No
  Sender: FDA-Public Use
  Company Number: USA040156582

PATIENT
  Age: 64 Year
  Sex: Female

DRUGS (5)
  1. FORTEO [Suspect]
     Indication: OSTEOPOROSIS
     Dosage: 20 UG/ 1 DAY
     Dates: start: 20031101
  2. SYNTHROID [Concomitant]
  3. KLONOPIN (CLONAZEPAN) [Concomitant]
  4. EFFEXOR [Concomitant]
  5. PRAVACHOL [Concomitant]

REACTIONS (5)
  - BONE PAIN [None]
  - INJECTION SITE HAEMORRHAGE [None]
  - MUSCLE CRAMP [None]
  - MYALGIA [None]
  - WEIGHT INCREASED [None]
